FAERS Safety Report 5148579-9 (Version None)
Quarter: 2006Q4

REPORT INFORMATION
  Report Type: 
  Country: None (occurrence: None)
  Receive Date: 20060918
  Receipt Date: 20060315
  Transmission Date: 20070319
  Serious: Yes (Other)
  Sender: FDA-Public Use
  Company Number: US-JNJFOC-20060304298

PATIENT
  Age: 20 Year
  Sex: Female
  Weight: 63.5036 kg

DRUGS (1)
  1. TOPAMAX [Suspect]
     Indication: MYOCLONIC EPILEPSY
     Dosage: ^2 PILLS A DAY^
     Dates: start: 20051001

REACTIONS (3)
  - CONFUSIONAL STATE [None]
  - MYOCLONUS [None]
  - THINKING ABNORMAL [None]
